FAERS Safety Report 10162476 (Version 2)
Quarter: 2014Q2

REPORT INFORMATION
  Report Type: Report from Study
  Country: AR (occurrence: AR)
  Receive Date: 20140509
  Receipt Date: 20140604
  Transmission Date: 20141212
  Serious: Yes (Other)
  Sender: FDA-Public Use
  Company Number: AR-US-EMD SERONO, INC.-7288926

PATIENT
  Age: 53 Year
  Sex: Male

DRUGS (12)
  1. REBIF [Suspect]
     Indication: PRODUCT USED FOR UNKNOWN INDICATION
     Dates: start: 20061215
  2. REBIF [Suspect]
     Dates: end: 2013
  3. REBIF [Suspect]
     Dosage: SINGLE WEEKLY DOSE
     Dates: start: 201402
  4. TEGRETOL [Concomitant]
     Indication: PRODUCT USED FOR UNKNOWN INDICATION
  5. PREGABALIN [Concomitant]
     Indication: PRODUCT USED FOR UNKNOWN INDICATION
     Dosage: 150+150
  6. LOSACOR [Concomitant]
     Indication: PRODUCT USED FOR UNKNOWN INDICATION
     Dosage: 1/2 1/2
  7. AAS [Concomitant]
     Indication: PRODUCT USED FOR UNKNOWN INDICATION
  8. LEXAPRO [Concomitant]
     Indication: PRODUCT USED FOR UNKNOWN INDICATION
  9. NIFEDIPINE [Concomitant]
     Indication: PRODUCT USED FOR UNKNOWN INDICATION
  10. SPIRONOLACTONE [Concomitant]
     Indication: PRODUCT USED FOR UNKNOWN INDICATION
  11. NEBIVOLOL [Concomitant]
     Indication: PRODUCT USED FOR UNKNOWN INDICATION
  12. LOTRIAL                            /00574901/ [Concomitant]
     Indication: PRODUCT USED FOR UNKNOWN INDICATION

REACTIONS (10)
  - Haemorrhagic stroke [Not Recovered/Not Resolved]
  - Paralysis [Not Recovered/Not Resolved]
  - Enteral nutrition [Not Recovered/Not Resolved]
  - Urinary tract infection [Unknown]
  - Aphasia [Unknown]
  - Autonomic nervous system imbalance [Unknown]
  - Hemiplegia [Unknown]
  - Hypertension [Unknown]
  - Pyrexia [Unknown]
  - Influenza like illness [Unknown]
